FAERS Safety Report 12856149 (Version 1)
Quarter: 2016Q4

REPORT INFORMATION
  Report Type: Spontaneous
  Country: US (occurrence: US)
  Receive Date: 20161018
  Receipt Date: 20161018
  Transmission Date: 20170207
  Serious: No
  Sender: FDA-Public Use
  Company Number: US-009507513-1609USA013931

PATIENT
  Age: 62 Year
  Sex: Female

DRUGS (3)
  1. BELSOMRA [Suspect]
     Active Substance: SUVOREXANT
     Dosage: 10 MG, QD
     Route: 048
  2. BELSOMRA [Suspect]
     Active Substance: SUVOREXANT
     Dosage: 20 MG, QD
     Route: 048
  3. BELSOMRA [Suspect]
     Active Substance: SUVOREXANT
     Dosage: 30 MG, QD
     Route: 048

REACTIONS (2)
  - Drug ineffective [Unknown]
  - Overdose [Unknown]
